FAERS Safety Report 15320117 (Version 1)
Quarter: 2018Q3

REPORT INFORMATION
  Report Type: Spontaneous
  Country: US (occurrence: US)
  Receive Date: 20180827
  Receipt Date: 20180827
  Transmission Date: 20181010
  Serious: No
  Sender: FDA-Public Use
  Company Number: US-PFIZER INC-2018338686

PATIENT

DRUGS (12)
  1. HYDROCODONE [Suspect]
     Active Substance: HYDROCODONE
     Indication: NEUROPATHY PERIPHERAL
  2. OXYCONTIN [Suspect]
     Active Substance: OXYCODONE HYDROCHLORIDE
     Indication: NERVE INJURY
     Dosage: UNK
  3. OXYCONTIN [Suspect]
     Active Substance: OXYCODONE HYDROCHLORIDE
     Indication: MUSCULOSKELETAL CHEST PAIN
  4. OXYCONTIN [Suspect]
     Active Substance: OXYCODONE HYDROCHLORIDE
     Indication: NEUROPATHY PERIPHERAL
  5. FENTANYL CITRATE. [Suspect]
     Active Substance: FENTANYL CITRATE
     Indication: NERVE INJURY
     Dosage: UNK
  6. HYDROCODONE [Suspect]
     Active Substance: HYDROCODONE
     Indication: NERVE INJURY
     Dosage: UNK
  7. HYDROCODONE [Suspect]
     Active Substance: HYDROCODONE
     Indication: MUSCULOSKELETAL CHEST PAIN
  8. FENTANYL CITRATE. [Suspect]
     Active Substance: FENTANYL CITRATE
     Indication: MUSCULOSKELETAL CHEST PAIN
  9. FENTANYL CITRATE. [Suspect]
     Active Substance: FENTANYL CITRATE
     Indication: NEUROPATHY PERIPHERAL
  10. HYDROCODONE [Suspect]
     Active Substance: HYDROCODONE
     Indication: NEURALGIA
  11. OXYCONTIN [Suspect]
     Active Substance: OXYCODONE HYDROCHLORIDE
     Indication: NEURALGIA
  12. FENTANYL CITRATE. [Suspect]
     Active Substance: FENTANYL CITRATE
     Indication: NEURALGIA

REACTIONS (1)
  - Drug ineffective for unapproved indication [Unknown]
